FAERS Safety Report 7528819-9 (Version None)
Quarter: 2011Q2

REPORT INFORMATION
  Report Type: 
  Country: None (occurrence: None)
  Receive Date: 20110607
  Receipt Date: 20101111
  Transmission Date: 20111010
  Serious: Yes (Other)
  Sender: FDA-Public Use
  Company Number: US-ASTRAZENECA-2010SE45933

PATIENT
  Age: 83 Year
  Sex: Female
  Weight: 52.2 kg

DRUGS (2)
  1. PRILOSEC OTC [Suspect]
     Indication: ABDOMINAL PAIN UPPER
     Route: 048
  2. PRILOSEC OTC [Suspect]
     Route: 048
     Dates: start: 20100904, end: 20100910

REACTIONS (6)
  - NECK PAIN [None]
  - MUSCULAR WEAKNESS [None]
  - HEADACHE [None]
  - MALAISE [None]
  - ABDOMINAL PAIN UPPER [None]
  - DRUG DOSE OMISSION [None]
